FAERS Safety Report 5672083-2 (Version None)
Quarter: 2008Q1

REPORT INFORMATION
  Report Type: 
  Country: None (occurrence: None)
  Receive Date: 20080317
  Receipt Date: 20080317
  Transmission Date: 20080703
  Serious: Yes (Life-Threatening, Other)
  Sender: FDA-Public Use
  Company Number: None

PATIENT
  Age: 47 Year
  Sex: Female
  Weight: 63.5036 kg

DRUGS (1)
  1. CHANTIX [Suspect]
     Indication: SMOKING CESSATION THERAPY
     Dosage: .05MG/.05MG/ ONCE DAYS/TWICE 4 ;  1MG TWICE A DAY
     Dates: start: 20071026, end: 20080325

REACTIONS (14)
  - ABNORMAL DREAMS [None]
  - CONDITION AGGRAVATED [None]
  - DEPRESSED MOOD [None]
  - DISTURBANCE IN ATTENTION [None]
  - EMOTIONAL DISORDER [None]
  - FATIGUE [None]
  - ILL-DEFINED DISORDER [None]
  - INCOHERENT [None]
  - MENORRHAGIA [None]
  - MENTAL DISORDER [None]
  - NERVOUS SYSTEM DISORDER [None]
  - NERVOUSNESS [None]
  - THINKING ABNORMAL [None]
  - VISION BLURRED [None]
